FAERS Safety Report 11121705 (Version 3)
Quarter: 2015Q2

REPORT INFORMATION
  Report Type: Spontaneous
  Country: US (occurrence: US)
  Receive Date: 20150519
  Receipt Date: 20150610
  Transmission Date: 20150821
  Serious: Yes (Hospitalization, Other)
  Sender: FDA-Public Use
  Company Number: US-009507513-1201USA01080

PATIENT
  Sex: Female
  Weight: 117.46 kg

DRUGS (4)
  1. ALENDRONATE SODIUM. [Suspect]
     Active Substance: ALENDRONATE SODIUM
     Indication: BONE DENSITY DECREASED
     Dosage: 70 MG, QW
     Route: 048
     Dates: start: 2008, end: 2009
  2. FOSAMAX [Suspect]
     Active Substance: ALENDRONATE SODIUM
     Indication: BONE DENSITY DECREASED
     Dosage: UNK
     Route: 048
     Dates: start: 1998, end: 2008
  3. FOSAMAX [Suspect]
     Active Substance: ALENDRONATE SODIUM
     Dosage: 70 MG, QW
     Route: 048
     Dates: start: 20051010, end: 20100115
  4. ALENDRONATE SODIUM. [Suspect]
     Active Substance: ALENDRONATE SODIUM
     Dosage: 70 MG, UNK
     Route: 048
     Dates: start: 20080809, end: 20091108

REACTIONS (26)
  - Intramedullary rod insertion [Unknown]
  - Knee arthroplasty [Unknown]
  - Renal failure [Unknown]
  - Medical device removal [Unknown]
  - Device failure [Unknown]
  - Chronic obstructive pulmonary disease [Not Recovered/Not Resolved]
  - Osteopenia [Unknown]
  - Hyperlipidaemia [Unknown]
  - Urinary tract infection [Unknown]
  - Type 2 diabetes mellitus [Unknown]
  - Cardiac failure congestive [Unknown]
  - Fracture delayed union [Unknown]
  - Chest pain [Unknown]
  - Internal fixation of fracture [Unknown]
  - Hypothyroidism [Unknown]
  - Exposure to toxic agent [Not Recovered/Not Resolved]
  - Femur fracture [Unknown]
  - Abdominal hernia [Unknown]
  - Hypertension [Unknown]
  - Spinal osteoarthritis [Unknown]
  - Knee arthroplasty [Unknown]
  - Exostosis [Unknown]
  - Asthenia [Unknown]
  - Osteoporosis [Unknown]
  - Bronchitis chronic [Not Recovered/Not Resolved]
  - Anaemia [Unknown]

NARRATIVE: CASE EVENT DATE: 1998
